FAERS Safety Report 7286848-7 (Version None)
Quarter: 2011Q1

REPORT INFORMATION
  Report Type: 
  Country: None (occurrence: None)
  Receive Date: 20110210
  Receipt Date: 20110207
  Transmission Date: 20110831
  Serious: Yes (Hospitalization)
  Sender: FDA-Public Use
  Company Number: SG-BRISTOL-MYERS SQUIBB COMPANY-15115256

PATIENT
  Age: 48 Year
  Sex: Male

DRUGS (14)
  1. DIPHENHYDRAMINE [Concomitant]
     Indication: PREMEDICATION
     Route: 042
     Dates: start: 20100426, end: 20100426
  2. INSULIN [Concomitant]
     Indication: HYPERGLYCAEMIA
     Dosage: 1DF=6 UNITS
     Dates: start: 20100401
  3. DEXAMETHASONE [Concomitant]
     Indication: PREMEDICATION
     Dosage: 20MG:25APR2010-UNK 20MG:26APR2010-UNK
     Route: 042
     Dates: start: 20100425
  4. SIMVASTATIN [Concomitant]
     Indication: HYPERLIPIDAEMIA
     Dates: start: 20000401
  5. RANITIDINE [Concomitant]
     Indication: PREMEDICATION
     Route: 042
     Dates: start: 20100426, end: 20100426
  6. ACETYLSALICYLIC ACID [Concomitant]
     Indication: HYPERTENSION
     Dates: start: 20000401
  7. GLIPIZIDE [Concomitant]
     Indication: HYPERGLYCAEMIA
     Dates: start: 20000401
  8. PROMETHAZINE W/ CODEINE [Concomitant]
     Indication: COUGH
     Dates: start: 20100301
  9. METFORMIN [Concomitant]
     Indication: HYPERGLYCAEMIA
     Dates: start: 20000401
  10. PEGFILGRASTIM [Concomitant]
     Indication: PROPHYLAXIS
     Dates: start: 20100427
  11. ONDANSERTRON HCL [Concomitant]
     Indication: PREMEDICATION
     Route: 042
     Dates: start: 20100426, end: 20100426
  12. ENALAPRIL MALEATE [Concomitant]
     Indication: HYPERTENSION
     Dates: start: 20000401
  13. CARBOPLATIN [Suspect]
     Indication: NON-SMALL CELL LUNG CANCER
     Dosage: AUC 6 DAY 1 OF 21 DAY CYCLE
     Route: 042
     Dates: start: 20100426
  14. PACLITAXEL [Suspect]
     Indication: NON-SMALL CELL LUNG CANCER
     Dosage: DAY 1 OF 21 DAY CYCLE
     Route: 042
     Dates: start: 20100426

REACTIONS (1)
  - PANCREATITIS [None]
